FAERS Safety Report 10467406 (Version 2)
Quarter: 2014Q4

REPORT INFORMATION
  Report Type: Spontaneous
  Country: US (occurrence: US)
  Receive Date: 20140922
  Receipt Date: 20141230
  Transmission Date: 20150528
  Serious: Yes (Hospitalization)
  Sender: FDA-Public Use
  Company Number: US-BAYER-2014-140649

PATIENT
  Age: 45 Year
  Sex: Female
  Weight: 97.55 kg

DRUGS (10)
  1. METFORMIN [Concomitant]
     Active Substance: METFORMIN HYDROCHLORIDE
     Dosage: 1000 MG, UNK
     Route: 048
     Dates: start: 201005
  2. BISOPROLOL FUMARATE. [Concomitant]
     Active Substance: BISOPROLOL FUMARATE
     Dosage: 5 MG, UNK
     Route: 048
     Dates: start: 201005
  3. FLAGYL [Concomitant]
     Active Substance: METRONIDAZOLE\METRONIDAZOLE HYDROCHLORIDE
  4. FLUCONAZOLE. [Concomitant]
     Active Substance: FLUCONAZOLE
  5. MIRENA [Suspect]
     Active Substance: LEVONORGESTREL
     Indication: MENORRHAGIA
  6. DIOVAN [Concomitant]
     Active Substance: VALSARTAN
     Route: 048
  7. HEMOCYTE-F [Concomitant]
     Route: 048
  8. MIRENA [Suspect]
     Active Substance: LEVONORGESTREL
     Indication: CONTRACEPTION
     Dosage: 20 MCG/24HR, CONT
     Route: 015
     Dates: start: 20101020, end: 20120224
  9. HYDROCHLOROTHIAZIDE. [Concomitant]
     Active Substance: HYDROCHLOROTHIAZIDE
     Route: 048
  10. GLIPIZIDE. [Concomitant]
     Active Substance: GLIPIZIDE
     Route: 048

REACTIONS (13)
  - Anxiety [None]
  - Emotional distress [None]
  - Depressed mood [None]
  - Injury [None]
  - Internal injury [None]
  - Pelvic pain [None]
  - Depression [None]
  - Abdominal pain lower [None]
  - Fear [None]
  - Genital haemorrhage [None]
  - General physical health deterioration [None]
  - Uterine perforation [None]
  - Medical device discomfort [None]

NARRATIVE: CASE EVENT DATE: 20120125
